FAERS Safety Report 11511956 (Version 1)
Quarter: 2015Q3

REPORT INFORMATION
  Report Type: Spontaneous
  Country: IT (occurrence: IT)
  Receive Date: 20150916
  Receipt Date: 20150916
  Transmission Date: 20151125
  Serious: Yes (Other)
  Sender: FDA-Public Use
  Company Number: IT-ROCHE-1633992

PATIENT
  Age: 12 Year
  Sex: Female

DRUGS (5)
  1. CORTISON [Concomitant]
     Active Substance: CORTISONE ACETATE
  2. RITUXIMAB [Suspect]
     Active Substance: RITUXIMAB
     Indication: EVANS SYNDROME
     Route: 042
  3. PREDNISONE. [Concomitant]
     Active Substance: PREDNISONE
     Route: 048
  4. METHYLPREDNISOLONE. [Concomitant]
     Active Substance: METHYLPREDNISOLONE
     Route: 042
  5. IMMUNOGLOBULIN G [Concomitant]
     Active Substance: HUMAN IMMUNOGLOBULIN G
     Route: 042

REACTIONS (5)
  - Investigation abnormal [Unknown]
  - Pyrexia [Unknown]
  - Arthritis [Unknown]
  - Arthralgia [Unknown]
  - Off label use [Unknown]
